FAERS Safety Report 19548903 (Version 1)
Quarter: 2021Q3

REPORT INFORMATION
  Report Type: Other
  Country: US (occurrence: US)
  Receive Date: 20210714
  Receipt Date: 20210714
  Transmission Date: 20211014
  Serious: Yes (Other)
  Sender: FDA-Public Use
  Company Number: US-INTERCEPT-PM2021002198

PATIENT
  Age: 64 Year
  Sex: Female

DRUGS (2)
  1. OCALIVA [Suspect]
     Active Substance: OBETICHOLIC ACID
     Indication: PRIMARY BILIARY CHOLANGITIS
     Dosage: 5 MILLIGRAM, QD
     Route: 048
  2. OCALIVA [Suspect]
     Active Substance: OBETICHOLIC ACID
     Dosage: 5 MILLIGRAM, QW
     Route: 048
     Dates: start: 202006

REACTIONS (13)
  - Asthma [Unknown]
  - Diarrhoea [Unknown]
  - Arthralgia [Unknown]
  - Anxiety [Unknown]
  - Gait disturbance [Unknown]
  - Decreased activity [Unknown]
  - Fatigue [Unknown]
  - Decreased appetite [Unknown]
  - Flatulence [Unknown]
  - Diabetes mellitus [Unknown]
  - Insomnia [Unknown]
  - Depressed mood [Unknown]
  - Asthenia [Unknown]

NARRATIVE: CASE EVENT DATE: 202106
